FAERS Safety Report 4566674-X (Version None)
Quarter: 2005Q1

REPORT INFORMATION
  Report Type: 
  Country: None (occurrence: None)
  Receive Date: 20050126
  Receipt Date: 20050111
  Transmission Date: 20050727
  Serious: Yes (Death, Hospitalization)
  Sender: FDA-Public Use
  Company Number: US_0501110170

PATIENT
  Sex: Female

DRUGS (1)
  1. INSULIN-INSULIN-ANIMAL (INSUL [Suspect]

REACTIONS (2)
  - LEG AMPUTATION [None]
  - PHARMACEUTICAL PRODUCT COMPLAINT [None]
